FAERS Safety Report 18438996 (Version 1)
Quarter: 2020Q4

REPORT INFORMATION
  Report Type: Spontaneous
  Country: US (occurrence: US)
  Receive Date: 20201028
  Receipt Date: 20201028
  Transmission Date: 20210114
  Serious: No
  Sender: FDA-Public Use
  Company Number: US-PARATEK PHARMACEUTICALS, INC.-2020PTK00224

PATIENT
  Age: 64 Year
  Sex: Female

DRUGS (16)
  1. MONTELUKAST [Concomitant]
     Active Substance: MONTELUKAST SODIUM
  2. POTASSIUM [Concomitant]
     Active Substance: POTASSIUM
  3. LEVOTHYROXINE. [Concomitant]
     Active Substance: LEVOTHYROXINE
  4. FUROSEMIDE. [Concomitant]
     Active Substance: FUROSEMIDE
  5. DRONABINOL. [Concomitant]
     Active Substance: DRONABINOL
  6. NUZYRA [Suspect]
     Active Substance: OMADACYCLINE
     Indication: MYCOBACTERIAL INFECTION
     Dosage: 300 MG, 1X/DAY
     Dates: start: 20200206
  7. NUZYRA [Suspect]
     Active Substance: OMADACYCLINE
     Indication: SPINAL CORD ABSCESS
  8. OMEPRAZOLE. [Concomitant]
     Active Substance: OMEPRAZOLE
  9. HYDROXYCHLOROQUINE [Concomitant]
     Active Substance: HYDROXYCHLOROQUINE
  10. NIFEDIPINE. [Concomitant]
     Active Substance: NIFEDIPINE
  11. LORATADINE. [Concomitant]
     Active Substance: LORATADINE
  12. NUZYRA [Suspect]
     Active Substance: OMADACYCLINE
     Indication: GRANULOMA
  13. GABAPENTIN. [Concomitant]
     Active Substance: GABAPENTIN
  14. NORCO [Concomitant]
     Active Substance: ACETAMINOPHEN\HYDROCODONE BITARTRATE
  15. BUPROPION. [Concomitant]
     Active Substance: BUPROPION
  16. ADDERALL [Concomitant]
     Active Substance: AMPHETAMINE ASPARTATE\AMPHETAMINE SULFATE\DEXTROAMPHETAMINE SACCHARATE\DEXTROAMPHETAMINE SULFATE

REACTIONS (3)
  - Hypoaesthesia oral [Not Recovered/Not Resolved]
  - Tinnitus [Not Recovered/Not Resolved]
  - Off label use [Not Recovered/Not Resolved]

NARRATIVE: CASE EVENT DATE: 2020
